FAERS Safety Report 4433889-0 (Version None)
Quarter: 2004Q3

REPORT INFORMATION
  Report Type: 
  Country: None (occurrence: None)
  Receive Date: 20040825
  Receipt Date: 20040810
  Transmission Date: 20050211
  Serious: Yes (Other)
  Sender: FDA-Public Use
  Company Number: USA040874598

PATIENT
  Age: 64 Year
  Sex: Female

DRUGS (12)
  1. FORTEO [Suspect]
     Indication: OSTEOPOROSIS
     Dosage: 20 UG DAY
     Dates: start: 20040803
  2. SYNTHROID [Concomitant]
  3. PREMPRO [Concomitant]
  4. CALCIUM PLUS D [Concomitant]
  5. MULTI-VITAMIN [Concomitant]
  6. CLINDAMYCIN [Concomitant]
  7. IBUPROFEN [Concomitant]
  8. ACETAMINOPHEN [Concomitant]
  9. DIPROLENE AF (BETAMETHASONE DIPROPIONATE) [Concomitant]
  10. GAVISCON [Concomitant]
  11. PRILOSEC [Concomitant]
  12. TUMS (CALCIUM CARBONATE) [Concomitant]

REACTIONS (13)
  - BLOOD PRESSURE INCREASED [None]
  - CHEST PAIN [None]
  - DIZZINESS [None]
  - DYSPNOEA [None]
  - EYE PAIN [None]
  - HEART RATE INCREASED [None]
  - INJECTION SITE ERYTHEMA [None]
  - INJECTION SITE HAEMORRHAGE [None]
  - INJECTION SITE PAIN [None]
  - INJECTION SITE PRURITUS [None]
  - PHARMACEUTICAL PRODUCT COMPLAINT [None]
  - RETINAL DISORDER [None]
  - THROAT TIGHTNESS [None]
